FAERS Safety Report 9007909 (Version 1)
Quarter: 2013Q1

REPORT INFORMATION
  Report Type: Spontaneous
  Country: US (occurrence: US)
  Receive Date: 20130111
  Receipt Date: 20130111
  Transmission Date: 20140127
  Serious: Yes (Other)
  Sender: FDA-Public Use
  Company Number: US-009507513-1301USA003453

PATIENT
  Age: 65 Year
  Sex: Female

DRUGS (6)
  1. SINGULAIR [Suspect]
  2. VENTOLIN (ALBUTEROL SULFATE) [Suspect]
     Indication: HIATUS HERNIA
  3. ADVAIR [Suspect]
  4. OMEPRAZOLE [Suspect]
  5. TRIAMCINOLONE [Concomitant]
     Indication: ASTHMA
  6. DIHYDROCODEINE [Concomitant]
     Indication: BLOOD PRESSURE

REACTIONS (3)
  - Increased upper airway secretion [Unknown]
  - Condition aggravated [Unknown]
  - Asthma [Unknown]
